APPROVED DRUG PRODUCT: CYCLOPHOSPHAMIDE
Active Ingredient: CYCLOPHOSPHAMIDE
Strength: 1GM/VIAL
Dosage Form/Route: INJECTABLE;INJECTION
Application: A218644 | Product #002 | TE Code: AP
Applicant: EPIC PHARMA LLC
Approved: Dec 19, 2024 | RLD: No | RS: No | Type: RX